APPROVED DRUG PRODUCT: DISPERMOX
Active Ingredient: AMOXICILLIN
Strength: 200MG
Dosage Form/Route: TABLET, FOR SUSPENSION;ORAL
Application: A065080 | Product #002
Applicant: RANBAXY LABORATORIES LTD
Approved: Aug 11, 2003 | RLD: No | RS: No | Type: DISCN